FAERS Safety Report 10736923 (Version 1)
Quarter: 2015Q1

REPORT INFORMATION
  Report Type: Spontaneous
  Country: US (occurrence: None)
  Receive Date: 20150122
  Receipt Date: 20150122
  Transmission Date: 20150721
  Serious: Yes (Death)
  Sender: FDA-Public Use
  Company Number: None

PATIENT
  Age: 32 Year
  Sex: Male
  Weight: 92.99 kg

DRUGS (1)
  1. VYVANSE [Suspect]
     Active Substance: LISDEXAMFETAMINE DIMESYLATE
     Indication: ATTENTION DEFICIT/HYPERACTIVITY DISORDER
     Dosage: 1 PILL , ONCE DAILY, TAKEN BY MOUTH
     Route: 048
     Dates: start: 20141218, end: 20150118

REACTIONS (5)
  - Suicidal ideation [None]
  - Agitation [None]
  - Aggression [None]
  - Completed suicide [None]
  - Asphyxia [None]

NARRATIVE: CASE EVENT DATE: 20150119
